FAERS Safety Report 11795616 (Version 1)
Quarter: 2015Q4

REPORT INFORMATION
  Report Type: Spontaneous
  Country: US (occurrence: US)
  Receive Date: 20151202
  Receipt Date: 20151202
  Transmission Date: 20160305
  Serious: No
  Sender: FDA-Public Use
  Company Number: US-ASTRAZENECA-2015SF09902

PATIENT
  Age: 18941 Day
  Sex: Male
  Weight: 84.4 kg

DRUGS (1)
  1. BYDUREON [Suspect]
     Active Substance: EXENATIDE
     Indication: TYPE 2 DIABETES MELLITUS
     Route: 058

REACTIONS (4)
  - Injection site haemorrhage [Unknown]
  - Discomfort [Not Recovered/Not Resolved]
  - Intentional product misuse [Unknown]
  - Injury associated with device [Unknown]

NARRATIVE: CASE EVENT DATE: 20151109
